FAERS Safety Report 5425421-X (Version None)
Quarter: 2007Q3

REPORT INFORMATION
  Report Type: 
  Country: None (occurrence: None)
  Receive Date: 20070824
  Receipt Date: 20070803
  Transmission Date: 20080115
  Serious: No
  Sender: FDA-Public Use
  Company Number: US-BOEHRINGER INGELHEIM PHARMACEUTICALS, INC.-2007-BP-18728BP

PATIENT
  Age: 57 Year

DRUGS (1)
  1. FLOMAX [Suspect]

REACTIONS (2)
  - ANOREXIA [None]
  - WEIGHT DECREASED [None]
